FAERS Safety Report 6654003-7 (Version None)
Quarter: 2010Q1

REPORT INFORMATION
  Report Type: 
  Country: None (occurrence: None)
  Receive Date: 20100326
  Receipt Date: 20100312
  Transmission Date: 20100710
  Serious: Yes (Death, Other)
  Sender: FDA-Public Use
  Company Number: US-ELI_LILLY_AND_COMPANY-US201003003772

PATIENT
  Age: 67 Year
  Sex: Female

DRUGS (2)
  1. EFFIENT [Suspect]
     Indication: PERCUTANEOUS CORONARY INTERVENTION
     Dosage: UNK, UNK
     Dates: start: 20100308, end: 20100309
  2. PLAVIX [Concomitant]
     Dates: start: 20100310

REACTIONS (2)
  - ARTERIAL HAEMORRHAGE [None]
  - PROCEDURAL COMPLICATION [None]
